FAERS Safety Report 6253295-6 (Version None)
Quarter: 2009Q3

REPORT INFORMATION
  Report Type: 
  Country: None (occurrence: None)
  Receive Date: 20090701
  Receipt Date: 20090625
  Transmission Date: 20100115
  Serious: Yes (Other)
  Sender: FDA-Public Use
  Company Number: ES-GENENTECH-285270

PATIENT
  Age: 31 Year
  Sex: Female

DRUGS (5)
  1. TRASTUZUMAB [Suspect]
     Indication: BREAST CANCER
     Dosage: 8 MG/KG, UNK
  2. TRASTUZUMAB [Suspect]
     Dosage: 2 MG/KG, 1/WEEK
  3. FLUOROURACIL [Concomitant]
     Indication: CHEMOTHERAPY
     Dosage: UNK
  4. DOXORUBICIN HCL [Concomitant]
     Indication: CHEMOTHERAPY
     Dosage: UNK
  5. CYCLOPHOSPHAMIDE [Concomitant]
     Indication: CHEMOTHERAPY
     Dosage: UNK

REACTIONS (1)
  - HEPATOTOXICITY [None]
